FAERS Safety Report 6818657-4 (Version None)
Quarter: 2010Q3

REPORT INFORMATION
  Report Type: 
  Country: None (occurrence: None)
  Receive Date: 20100706
  Receipt Date: 20090122
  Transmission Date: 20110219
  Serious: No
  Sender: FDA-Public Use
  Company Number: US-PFIZER INC-2009161744

PATIENT
  Sex: Male
  Weight: 102.51 kg

DRUGS (5)
  1. AZITHROMYCIN [Suspect]
     Indication: PYREXIA
     Dosage: UNK
     Dates: start: 20081201
  2. AZITHROMYCIN [Suspect]
     Indication: STAPHYLOCOCCAL INFECTION
  3. AZITHROMYCIN [Suspect]
     Indication: PHARYNGEAL DISORDER
  4. ANTIHYPERTENSIVES [Concomitant]
     Dosage: UNK
  5. ANTIDEPRESSANTS [Concomitant]

REACTIONS (1)
  - RASH PRURITIC [None]
